FAERS Safety Report 5761028-2 (Version None)
Quarter: 2008Q2

REPORT INFORMATION
  Report Type: 
  Country: None (occurrence: None)
  Receive Date: 20080606
  Receipt Date: 20080201
  Transmission Date: 20081010
  Serious: No
  Sender: FDA-Public Use
  Company Number: US-ASTRAZENECA-2006UW18187

PATIENT
  Sex: Female

DRUGS (5)
  1. PRILOSEC [Suspect]
     Route: 048
     Dates: start: 19970101
  2. CLARITIN [Concomitant]
  3. ADVAIR DISKUS 100/50 [Concomitant]
  4. FORADIL [Concomitant]
  5. ASMANEX TWISTHALER [Concomitant]

REACTIONS (1)
  - VITAMIN B12 DEFICIENCY [None]
